FAERS Safety Report 17002876 (Version 1)
Quarter: 2019Q4

REPORT INFORMATION
  Report Type: Spontaneous
  Country: US (occurrence: US)
  Receive Date: 20191107
  Receipt Date: 20191107
  Transmission Date: 20200122
  Serious: No
  Sender: FDA-Public Use
  Company Number: US-TEVA-2019-US-1134653

PATIENT
  Age: 48 Year
  Sex: Male
  Weight: 64 kg

DRUGS (3)
  1. GABAPENTIN. [Concomitant]
     Active Substance: GABAPENTIN
  2. AJOVY [Suspect]
     Active Substance: FREMANEZUMAB-VFRM
     Indication: MIGRAINE
     Dates: start: 201908
  3. TROKENDI [Concomitant]
     Active Substance: TOPIRAMATE

REACTIONS (7)
  - Injection related reaction [Unknown]
  - Injection site pruritus [Unknown]
  - Injection site pain [Unknown]
  - Swelling [Unknown]
  - Pain [Unknown]
  - Injection site erythema [Unknown]
  - Injection site swelling [Unknown]

NARRATIVE: CASE EVENT DATE: 201910
